FAERS Safety Report 9200977 (Version 2)
Quarter: 2013Q2

REPORT INFORMATION
  Report Type: Spontaneous
  Country: US (occurrence: None)
  Receive Date: 20130327
  Receipt Date: 20130425
  Transmission Date: 20140414
  Serious: Yes (Hospitalization)
  Sender: FDA-Public Use
  Company Number: 2013SGN00150

PATIENT
  Age: 18 Year
  Sex: Female

DRUGS (5)
  1. BRENTUXIMAB VEDOTIN (BRENTUXIMAB VEDOTIN) INJECTION [Suspect]
     Indication: HODGKIN^S DISEASE
     Dosage: 1.2 MG/KG, QCYCLE, INTRAVENOUS
     Dates: start: 20120719, end: 20120830
  2. IFOSFAMIDE AND MESNA [Suspect]
     Indication: HODGKIN^S DISEASE
     Dosage: 5000 MG/M2, QCYCLE, INTRAVENOUS
     Route: 042
     Dates: start: 20120912, end: 20120913
  3. CARBOPLATIN (CARBOPLATIN) [Suspect]
     Indication: HODGKIN^S DISEASE
     Dosage: QCYCLE, INTRAVENOUS
     Dates: start: 20120914, end: 20120914
  4. CARBOPLATIN (CARBOPLATIN) [Suspect]
     Indication: NEOPLASM RECURRENCE
     Dosage: QCYCLE, INTRAVENOUS
     Dates: start: 20120914, end: 20120914
  5. ETOPOSIDE (ETOPOSIDE) [Suspect]
     Indication: HODGKIN^S DISEASE
     Dosage: 200 MG/M2, QCYCLE, INTRAVENOUS
     Route: 042
     Dates: start: 20120912, end: 20120912

REACTIONS (3)
  - Febrile neutropenia [None]
  - Chills [None]
  - White blood cell count decreased [None]
